FAERS Safety Report 17450116 (Version 2)
Quarter: 2020Q1

REPORT INFORMATION
  Report Type: Report from Study
  Country: IT (occurrence: IT)
  Receive Date: 20200224
  Receipt Date: 20200303
  Transmission Date: 20200409
  Serious: Yes (Life-Threatening, Hospitalization, Other)
  Sender: FDA-Public Use
  Company Number: IT-AUROBINDO-AUR-APL-2020-005274

PATIENT
  Age: 52 Year
  Sex: Female

DRUGS (2)
  1. AMOXICILLIN / CLAVULANIC ACID 875/125MG FILM-COATED TABLET [Suspect]
     Active Substance: AMOXICILLIN\CLAVULANIC ACID
     Indication: OROPHARYNGEAL PAIN
     Dosage: 875/125 MG, (PILL, INGESTION)
     Route: 048
  2. AMOXICILLIN / CLAVULANIC ACID 875/125MG FILM-COATED TABLET [Suspect]
     Active Substance: AMOXICILLIN\CLAVULANIC ACID
     Indication: COUGH

REACTIONS (4)
  - Procalcitonin increased [Recovered/Resolved]
  - Leukocytosis [Recovered/Resolved]
  - Electrocardiogram abnormal [Unknown]
  - Anaphylactic shock [Recovered/Resolved]
